FAERS Safety Report 17136191 (Version 1)
Quarter: 2019Q4

REPORT INFORMATION
  Report Type: Report from Study
  Country: AU (occurrence: AU)
  Receive Date: 20191210
  Receipt Date: 20191210
  Transmission Date: 20200122
  Serious: Yes (Other)
  Sender: FDA-Public Use
  Company Number: AU-MYLANLABS-2019M1122003

PATIENT
  Age: 73 Year
  Sex: Male

DRUGS (2)
  1. BACLOFEN. [Suspect]
     Active Substance: BACLOFEN
     Indication: MUSCLE SPASTICITY
     Dosage: REGULAR DOSE
     Route: 048
  2. BACLOFEN. [Suspect]
     Active Substance: BACLOFEN
     Dosage: PRESCRIPTION ERROR
     Route: 048

REACTIONS (2)
  - Product prescribing error [Unknown]
  - Metabolic encephalopathy [Recovered/Resolved]
